FAERS Safety Report 6105235-8 (Version None)
Quarter: 2009Q1

REPORT INFORMATION
  Report Type: 
  Country: None (occurrence: None)
  Receive Date: 20090227
  Receipt Date: 20080723
  Transmission Date: 20090719
  Serious: Yes (Death)
  Sender: FDA-Public Use
  Company Number: RB-2645-2008

PATIENT
  Age: 43 Year
  Sex: Male

DRUGS (3)
  1. SUBOXONE [Suspect]
     Indication: DRUG DEPENDENCE
     Dosage: 8 MG TID SUBLINGUAL
     Route: 060
     Dates: start: 20060101, end: 20080601
  2. HEROIN [Suspect]
     Indication: DRUG ABUSE
     Dates: end: 20080601
  3. KLONOPIN [Suspect]
     Indication: ANXIETY
     Dates: end: 20080601

REACTIONS (1)
  - DRUG TOXICITY [None]
